FAERS Safety Report 9235017 (Version 1)
Quarter: 2013Q2

REPORT INFORMATION
  Report Type: Spontaneous
  Country: US (occurrence: US)
  Receive Date: 20130416
  Receipt Date: 20130416
  Transmission Date: 20140414
  Serious: Yes (Other)
  Sender: FDA-Public Use
  Company Number: US-PFIZER INC-2013117901

PATIENT
  Age: 61 Year
  Sex: Female
  Weight: 79.37 kg

DRUGS (2)
  1. GABAPENTIN [Suspect]
     Indication: FIBROMYALGIA
     Dosage: 300 MG, 3X/DAY
  2. DICLOFENAC SODIUM [Suspect]
     Dosage: UNK
     Dates: end: 2012

REACTIONS (7)
  - Off label use [Unknown]
  - Abasia [Unknown]
  - Fibromyalgia [Unknown]
  - Arthritis [Recovered/Resolved]
  - Local swelling [Recovered/Resolved]
  - Ulcer [Unknown]
  - Pain in extremity [Unknown]
